FAERS Safety Report 7925648-9 (Version None)
Quarter: 2011Q4

REPORT INFORMATION
  Report Type: 
  Country: None (occurrence: None)
  Receive Date: 20111118
  Receipt Date: 20110411
  Transmission Date: 20120403
  Serious: No
  Sender: FDA-Public Use
  Company Number: US-AMGEN-USASP2011019096

PATIENT
  Sex: Female
  Weight: 52.608 kg

DRUGS (3)
  1. CALCIUM [Concomitant]
     Dosage: 600 UNK, UNK
     Route: 048
  2. ENBREL [Suspect]
     Indication: PRODUCT USED FOR UNKNOWN INDICATION
  3. MULTIVITAMIN                       /00097801/ [Concomitant]
     Route: 048

REACTIONS (2)
  - NASAL DRYNESS [None]
  - ALOPECIA [None]
